FAERS Safety Report 8458896-2 (Version None)
Quarter: 2012Q2

REPORT INFORMATION
  Report Type: 
  Country: None (occurrence: None)
  Receive Date: 20120622
  Receipt Date: 20120618
  Transmission Date: 20120825
  Serious: Yes (Other)
  Sender: FDA-Public Use
  Company Number: US-BAYER-2012-060806

PATIENT
  Age: 38 Year
  Sex: Female

DRUGS (5)
  1. YAZ [Suspect]
     Dosage: UNK
     Dates: start: 20080201, end: 20100501
  2. YASMIN [Suspect]
     Dosage: UNK
     Dates: start: 20030901, end: 20040101
  3. YASMIN [Suspect]
     Dosage: UNK
     Dates: start: 20030901, end: 20040101
  4. YASMIN [Suspect]
     Dosage: UNK
     Dates: start: 20030901, end: 20040101
  5. DROSPIRENONE AND ETHINYL ESTRADIOL [Suspect]
     Dosage: UNK
     Dates: start: 20100601, end: 20110101

REACTIONS (3)
  - THROMBOSIS [None]
  - PULMONARY EMBOLISM [None]
  - INJURY [None]
